FAERS Safety Report 6375865-7 (Version None)
Quarter: 2009Q3

REPORT INFORMATION
  Report Type: 
  Country: None (occurrence: None)
  Receive Date: 20090924
  Receipt Date: 20090916
  Transmission Date: 20100115
  Serious: Yes (Other)
  Sender: FDA-Public Use
  Company Number: JP-JNJFOC-20090905590

PATIENT
  Sex: Male

DRUGS (4)
  1. REMICADE [Suspect]
     Dosage: 13TH INFUSION
     Route: 042
     Dates: start: 20060727, end: 20090123
  2. REMICADE [Suspect]
     Indication: PSORIATIC ARTHROPATHY
     Route: 042
     Dates: start: 20060727, end: 20090123
  3. RHEUMATREX [Suspect]
     Indication: PSORIATIC ARTHROPATHY
     Dosage: 4-8 MG/WEEK
     Route: 048
  4. ANTIBIOTICS [Concomitant]

REACTIONS (1)
  - MYCOBACTERIUM MARINUM INFECTION [None]
